FAERS Safety Report 25870276 (Version 1)
Quarter: 2025Q4

REPORT INFORMATION
  Report Type: Spontaneous
  Country: US (occurrence: US)
  Receive Date: 20251001
  Receipt Date: 20251001
  Transmission Date: 20260118
  Serious: No
  Sender: RECKITT BENCKISER
  Company Number: US-INDIVIOR US-INDV-157472-2024

PATIENT
  Age: 40 Year
  Sex: Male
  Weight: 109.3 kg

DRUGS (7)
  1. SUBOXONE [Suspect]
     Active Substance: BUPRENORPHINE HYDROCHLORIDE\NALOXONE HYDROCHLORIDE
     Indication: Drug use disorder
     Dosage: 8 MILLIGRAM, QD (2 FILM)
     Route: 060
     Dates: start: 20181116
  2. SUBOXONE [Suspect]
     Active Substance: BUPRENORPHINE HYDROCHLORIDE\NALOXONE HYDROCHLORIDE
     Indication: Pain
     Dosage: 8 MILLIGRAM, QD (2.5 FILM)
     Route: 060
     Dates: start: 20190325
  3. SUBOXONE [Suspect]
     Active Substance: BUPRENORPHINE HYDROCHLORIDE\NALOXONE HYDROCHLORIDE
     Dosage: 8 MILLIGRAM, EVERY 8 HOURS
     Route: 060
     Dates: start: 20220620
  4. SUBOXONE [Suspect]
     Active Substance: BUPRENORPHINE HYDROCHLORIDE\NALOXONE HYDROCHLORIDE
     Dosage: 8 MILLIGRAM, BID (MORNING AND EVENING)
     Route: 060
     Dates: start: 20230822
  5. BUPRENORPHINE\NALOXONE [Suspect]
     Active Substance: BUPRENORPHINE\NALOXONE
     Indication: Drug use disorder
     Dosage: 8 MILLIGRAM, UNKNOWN
     Route: 060
     Dates: start: 2019
  6. BUPRENORPHINE\NALOXONE [Suspect]
     Active Substance: BUPRENORPHINE\NALOXONE
     Indication: Pain
  7. FENTANYL [Suspect]
     Active Substance: FENTANYL
     Indication: Product used for unknown indication
     Dosage: UNK
     Route: 065

REACTIONS (16)
  - Snoring [Unknown]
  - Dry mouth [Unknown]
  - Dental caries [Unknown]
  - Tooth erosion [Unknown]
  - Tooth loss [Unknown]
  - Nightmare [Unknown]
  - Euphoric mood [Unknown]
  - Insomnia [Unknown]
  - Middle insomnia [Unknown]
  - Somnolence [Unknown]
  - Drug dependence [Unknown]
  - Drug dependence [Unknown]
  - Depressed mood [Unknown]
  - Substance abuse [Unknown]
  - Inappropriate schedule of product administration [Unknown]
  - Wrong technique in product usage process [Unknown]

NARRATIVE: CASE EVENT DATE: 20190325
